FAERS Safety Report 14850938 (Version 1)
Quarter: 2018Q2

REPORT INFORMATION
  Report Type: Spontaneous
  Country: US (occurrence: US)
  Receive Date: 20180506
  Receipt Date: 20180506
  Transmission Date: 20180711
  Serious: Yes (Hospitalization)
  Sender: FDA-Public Use
  Company Number: US-BEH-2018090245

PATIENT
  Age: 68 Year
  Sex: Male
  Weight: 97.51 kg

DRUGS (27)
  1. HIZENTRA [Suspect]
     Active Substance: HUMAN IMMUNOGLOBULIN G
     Dosage: 9 G, QW
     Route: 058
     Dates: start: 20180214
  2. LMX                                /00033401/ [Concomitant]
  3. LYRICA [Concomitant]
     Active Substance: PREGABALIN
  4. FLUTICASONE. [Concomitant]
     Active Substance: FLUTICASONE
  5. VITAMIN D3 [Concomitant]
     Active Substance: CHOLECALCIFEROL
  6. CARDIZEM [Concomitant]
     Active Substance: DILTIAZEM HYDROCHLORIDE
  7. ACETAMINOPHEN. [Concomitant]
     Active Substance: ACETAMINOPHEN
  8. DIPHENHYDRAMINE. [Concomitant]
     Active Substance: DIPHENHYDRAMINE
  9. AMLODIPINE [Concomitant]
     Active Substance: AMLODIPINE BESYLATE
  10. XOPENEX [Concomitant]
     Active Substance: LEVALBUTEROL HYDROCHLORIDE
  11. BUDESONIDE. [Concomitant]
     Active Substance: BUDESONIDE
  12. ELIQUIS [Concomitant]
     Active Substance: APIXABAN
  13. NOVOLOG [Concomitant]
     Active Substance: INSULIN ASPART
  14. LASIX [Concomitant]
     Active Substance: FUROSEMIDE
  15. GUAIFENESIN. [Concomitant]
     Active Substance: GUAIFENESIN
  16. PREDNISONE. [Concomitant]
     Active Substance: PREDNISONE
  17. HIZENTRA [Suspect]
     Active Substance: HUMAN IMMUNOGLOBULIN G
     Dosage: UNK
     Route: 058
  18. LATANOPROST. [Concomitant]
     Active Substance: LATANOPROST
  19. FLUNISOLIDE. [Concomitant]
     Active Substance: FLUNISOLIDE
  20. PERFOROMIST [Concomitant]
     Active Substance: FORMOTEROL FUMARATE DIHYDRATE
  21. EPINEPHRINE. [Concomitant]
     Active Substance: EPINEPHRINE
  22. SINGULAIR [Concomitant]
     Active Substance: MONTELUKAST SODIUM
  23. HIZENTRA [Suspect]
     Active Substance: HUMAN IMMUNOGLOBULIN G
     Indication: IMMUNODEFICIENCY COMMON VARIABLE
     Dosage: UNK
     Route: 058
  24. LANTUS [Concomitant]
     Active Substance: INSULIN GLARGINE
  25. OMEPRAZOLE. [Concomitant]
     Active Substance: OMEPRAZOLE
  26. LIPITOR [Concomitant]
     Active Substance: ATORVASTATIN CALCIUM
  27. AZELASTINE. [Concomitant]
     Active Substance: AZELASTINE HYDROCHLORIDE

REACTIONS (1)
  - Atrial fibrillation [Unknown]

NARRATIVE: CASE EVENT DATE: 20180413
